FAERS Safety Report 8855590 (Version 2)
Quarter: 2013Q3

REPORT INFORMATION
  Report Type: Spontaneous
  Country: US (occurrence: US)
  Receive Date: 20121023
  Receipt Date: 20130930
  Transmission Date: 20140515
  Serious: No
  Sender: FDA-Public Use
  Company Number: US-AMGEN-USASP2012059457

PATIENT
  Age: 67 Year
  Sex: Female

DRUGS (1)
  1. ENBREL [Suspect]
     Indication: RHEUMATOID ARTHRITIS
     Dosage: 50 MG, QWK
     Route: 058
     Dates: start: 20120312

REACTIONS (5)
  - Scratch [Recovered/Resolved]
  - Excoriation [Recovering/Resolving]
  - Drug eruption [Recovered/Resolved]
  - Impaired healing [Recovered/Resolved]
  - Localised infection [Recovered/Resolved]
